FAERS Safety Report 10080779 (Version 1)
Quarter: 2014Q2

REPORT INFORMATION
  Report Type: Spontaneous
  Country: US (occurrence: None)
  Receive Date: 20140415
  Receipt Date: 20140415
  Transmission Date: 20141212
  Serious: Yes (Other)
  Sender: FDA-Public Use
  Company Number: None

PATIENT
  Sex: Female
  Weight: 48.99 kg

DRUGS (7)
  1. OMEPRAZOLE 20MG TWICE DAILY [Suspect]
     Indication: GASTROOESOPHAGEAL REFLUX DISEASE
     Dosage: ONCE PO DAILY
     Route: 048
  2. ASPIRIN [Concomitant]
  3. TOPROL [Concomitant]
  4. LASIX [Concomitant]
  5. ATACAND [Concomitant]
  6. SPIRONOLATONE [Concomitant]
  7. TANAR [Concomitant]

REACTIONS (1)
  - Abdominal discomfort [None]
